FAERS Safety Report 7971741-4 (Version None)
Quarter: 2011Q4

REPORT INFORMATION
  Report Type: 
  Country: None (occurrence: None)
  Receive Date: 20111209
  Receipt Date: 20111209
  Transmission Date: 20120403
  Serious: Yes (Hospitalization)
  Sender: FDA-Public Use
  Company Number: None

PATIENT
  Age: 66 Year
  Sex: Male
  Weight: 107.3 kg

DRUGS (3)
  1. SULFAMETHOXAZOLE AND TRIMETHOPRIM [Suspect]
     Indication: CELLULITIS
     Dosage: 1 TAB BID PO
     Route: 048
     Dates: start: 20110509, end: 20110523
  2. SULFAMETHOXAZOLE AND TRIMETHOPRIM [Suspect]
     Indication: CELLULITIS
     Dosage: 1 TAB BID PO
     Route: 048
     Dates: start: 20110509, end: 20110523
  3. CEPHALEXIN [Suspect]
     Indication: CELLULITIS
     Dosage: 500 MG BID PO
     Route: 048
     Dates: start: 20110509, end: 20110523

REACTIONS (1)
  - JAUNDICE CHOLESTATIC [None]
